FAERS Safety Report 13585348 (Version 1)
Quarter: 2017Q2

REPORT INFORMATION
  Report Type: Spontaneous
  Country: FR (occurrence: FR)
  Receive Date: 20170526
  Receipt Date: 20170526
  Transmission Date: 20170830
  Serious: Yes (Other)
  Sender: FDA-Public Use
  Company Number: FR-GLAXOSMITHKLINE-FR2017GSK078681

PATIENT
  Age: 90 Year
  Sex: Female

DRUGS (14)
  1. LEDERFOLINE [Suspect]
     Active Substance: LEUCOVORIN CALCIUM
     Indication: PRODUCT USED FOR UNKNOWN INDICATION
     Dosage: 25 MG, 1D
     Route: 048
     Dates: start: 20170224
  2. PANTOPRAZOLE [Concomitant]
     Active Substance: PANTOPRAZOLE
     Indication: PRODUCT USED FOR UNKNOWN INDICATION
     Dosage: UNK
  3. FOLINORAL [Suspect]
     Active Substance: LEUCOVORIN CALCIUM
     Indication: PRODUCT USED FOR UNKNOWN INDICATION
     Dosage: UNK
     Dates: start: 20170228
  4. FLECAINE [Concomitant]
     Active Substance: FLECAINIDE
     Indication: PRODUCT USED FOR UNKNOWN INDICATION
     Dosage: UNK
  5. ERYTHROPOIETIN RECOMBINANT HUMAN [Suspect]
     Active Substance: ERYTHROPOIETIN
     Indication: PRODUCT USED FOR UNKNOWN INDICATION
     Dosage: UNK
     Dates: start: 20170224
  6. SOLU-MEDROL [Suspect]
     Active Substance: METHYLPREDNISOLONE SODIUM SUCCINATE
     Indication: PRODUCT USED FOR UNKNOWN INDICATION
     Dosage: UNK
     Dates: start: 20170224
  7. MABTHERA [Suspect]
     Active Substance: RITUXIMAB
     Indication: PRODUCT USED FOR UNKNOWN INDICATION
     Dosage: 100 MG, Z
     Route: 042
     Dates: start: 20170224, end: 20170323
  8. ZELITREX [Suspect]
     Active Substance: VALACYCLOVIR HYDROCHLORIDE
     Indication: PRODUCT USED FOR UNKNOWN INDICATION
     Dosage: 500 MG, 1D
     Route: 048
     Dates: start: 20170224
  9. CHLORAMBUCIL [Suspect]
     Active Substance: CHLORAMBUCIL
     Indication: PRODUCT USED FOR UNKNOWN INDICATION
     Dosage: 2 MG, 1D
     Route: 048
     Dates: start: 20170224, end: 2017
  10. FOSINOPRIL [Concomitant]
     Active Substance: FOSINOPRIL
     Indication: PRODUCT USED FOR UNKNOWN INDICATION
     Dosage: UNK
  11. BACTRIM FORTE (SULFAMETHOXAZOLE,TRIMETHOPRIME) [Suspect]
     Active Substance: SULFAMETHOXAZOLE\TRIMETHOPRIM
     Indication: PRODUCT USED FOR UNKNOWN INDICATION
     Dosage: 2 DF, 1D
     Route: 048
     Dates: start: 20170224
  12. LOVENOX [Suspect]
     Active Substance: ENOXAPARIN SODIUM
     Indication: PRODUCT USED FOR UNKNOWN INDICATION
     Dosage: 6000 DF, 1D, IU AXA
     Route: 058
     Dates: start: 20170224, end: 2017
  13. AMLODIPINE [Concomitant]
     Active Substance: AMLODIPINE BESYLATE
     Indication: PRODUCT USED FOR UNKNOWN INDICATION
     Dosage: UNK
  14. ESIDREX [Concomitant]
     Active Substance: HYDROCHLOROTHIAZIDE
     Indication: PRODUCT USED FOR UNKNOWN INDICATION
     Dosage: 25 MG, UNK

REACTIONS (2)
  - Cheilitis [Recovering/Resolving]
  - Toxic skin eruption [Recovering/Resolving]

NARRATIVE: CASE EVENT DATE: 201703
